FAERS Safety Report 4929369-6 (Version None)
Quarter: 2006Q1

REPORT INFORMATION
  Report Type: 
  Country: None (occurrence: None)
  Receive Date: 20060224
  Receipt Date: 20060213
  Transmission Date: 20060701
  Serious: Yes (Hospitalization)
  Sender: FDA-Public Use
  Company Number: 2006022624

PATIENT
  Age: 73 Year
  Sex: Female

DRUGS (3)
  1. EXEMESTANE [Suspect]
     Indication: BREAST CANCER
     Dosage: 25 MG (25 MG DAILY) , ORAL
     Route: 048
     Dates: start: 20040623, end: 20050825
  2. EXEMESTANE [Suspect]
     Indication: BREAST CANCER
     Dosage: 25 MG (25 MG DAILY) , ORAL
     Route: 048
     Dates: start: 20051109
  3. ANTIHYPERTENSIVES [Concomitant]

REACTIONS (8)
  - AORTIC ARTERIOSCLEROSIS [None]
  - CAROTID ARTERY OCCLUSION [None]
  - CEREBROVASCULAR ACCIDENT [None]
  - CONDITION AGGRAVATED [None]
  - DILATATION ATRIAL [None]
  - HYPERTENSION [None]
  - NAUSEA [None]
  - VOMITING [None]
